FAERS Safety Report 5163417-6 (Version None)
Quarter: 2006Q4

REPORT INFORMATION
  Report Type: 
  Country: None (occurrence: None)
  Receive Date: 20061121
  Receipt Date: 20061109
  Transmission Date: 20070319
  Serious: Yes (Hospitalization, Other)
  Sender: FDA-Public Use
  Company Number: US-2005-025424

PATIENT
  Age: 51 Year
  Sex: Male
  Weight: 101.8 kg

DRUGS (13)
  1. LEUKINE [Suspect]
     Indication: CROHN'S DISEASE
     Dosage: 6 UG/KG, 1X/DAY, SUBCUTANEOUS
     Route: 058
     Dates: start: 20051103, end: 20051130
  2. LEUKINE [Suspect]
     Indication: CROHN'S DISEASE
     Dosage: 6 UG/KG, 1X/DAY, SUBCUTANEOUS
     Route: 058
     Dates: start: 20051205, end: 20051226
  3. LOMOTIL [Concomitant]
  4. ROLAIDS [Concomitant]
  5. TUMS [Concomitant]
  6. MAALOX   /USA/(ALUMINIUM HYDROXIDE GEL, MAGNESIUM HYDROXIDE) [Concomitant]
  7. EXCEDRIN MIGRAINE (ACETYLSALICYLIC ACID) [Concomitant]
  8. NEOSPORIN (POLYMYXIN B SULFATE, BACITRACIN ZINC) [Concomitant]
  9. TYLENOL [Concomitant]
  10. BACTROBAN [Concomitant]
  11. AMBIEN [Concomitant]
  12. GLUCOSAMINE (GLUCOSAMINE) [Concomitant]
  13. MVI (VITAMINS NOS) [Concomitant]

REACTIONS (17)
  - ANXIETY [None]
  - BACK PAIN [None]
  - BONE PAIN [None]
  - CHILLS [None]
  - COUGH [None]
  - DRUG DOSE OMISSION [None]
  - EJECTION FRACTION DECREASED [None]
  - ELECTROCARDIOGRAM ST SEGMENT ELEVATION [None]
  - GINGIVAL PAIN [None]
  - GLOSSODYNIA [None]
  - HEADACHE [None]
  - INJECTION SITE REACTION [None]
  - INSOMNIA [None]
  - LEUKOCYTOSIS [None]
  - PERICARDITIS [None]
  - PHARYNGOLARYNGEAL PAIN [None]
  - SEXUAL DYSFUNCTION [None]
